FAERS Safety Report 6984500-6 (Version None)
Quarter: 2010Q3

REPORT INFORMATION
  Report Type: 
  Country: None (occurrence: None)
  Receive Date: 20100915
  Receipt Date: 20100909
  Transmission Date: 20110219
  Serious: Yes (Death)
  Sender: FDA-Public Use
  Company Number: US-CELGENEUS-163-20785-10081161

PATIENT
  Sex: Female

DRUGS (2)
  1. THALOMID [Suspect]
     Indication: AMYLOIDOSIS
     Route: 048
     Dates: start: 20010801
  2. THALOMID [Suspect]
     Route: 048
     Dates: start: 20040801, end: 20100501

REACTIONS (2)
  - PERITONITIS [None]
  - SEPSIS [None]
